FAERS Safety Report 15042993 (Version 4)
Quarter: 2024Q3

REPORT INFORMATION
  Report Type: Spontaneous
  Country: GR (occurrence: GR)
  Receive Date: 20180621
  Receipt Date: 20240913
  Transmission Date: 20241016
  Serious: Yes (Other)
  Sender: MYLAN
  Company Number: GR-PFIZER INC-2018106752

PATIENT
  Age: 85 Year
  Sex: Female

DRUGS (3)
  1. VANCOMYCIN [Suspect]
     Active Substance: VANCOMYCIN
     Indication: Bacillus infection
     Dosage: UNK
     Route: 042
  2. CIPROFLOXACIN [Suspect]
     Active Substance: CIPROFLOXACIN
     Indication: Bacillus infection
     Dosage: UNK
     Route: 065
  3. CLINDAMYCIN PHOSPHATE [Suspect]
     Active Substance: CLINDAMYCIN PHOSPHATE
     Indication: Bacillus infection
     Dosage: UNK
     Route: 042

REACTIONS (2)
  - Bacteraemia [Unknown]
  - Drug ineffective [Unknown]
